FAERS Safety Report 7756603-X (Version None)
Quarter: 2011Q3

REPORT INFORMATION
  Report Type: 
  Country: None (occurrence: None)
  Receive Date: 20110916
  Receipt Date: 20110909
  Transmission Date: 20111222
  Serious: Yes (Hospitalization)
  Sender: FDA-Public Use
  Company Number: PHHY2011BR80680

PATIENT
  Age: 35 Year
  Sex: Male

DRUGS (9)
  1. TRILEPTAL [Suspect]
     Dosage: UNK UKN, UNK
  2. CLONAZEPAM [Concomitant]
     Dosage: UNK UKN, UNK
  3. ZYPREXA [Concomitant]
     Dosage: UNK UKN, UNK
  4. TEGRETOL-XR [Suspect]
     Dosage: 400 MG, UNK
  5. CARBOLITIUM [Concomitant]
     Dosage: 1200 MG, DAILY
  6. DEPAKOTE [Concomitant]
     Dosage: UNK UKN, UNK
  7. INVEGA [Concomitant]
     Dosage: UNK UKN, UNK
  8. PURAN [Concomitant]
     Dosage: UNK UKN, UNK
  9. CITALOPRAM HYDROBROMIDE [Concomitant]
     Dosage: 2 DF, UNK

REACTIONS (1)
  - DELIRIUM [None]
